FAERS Safety Report 7301794-8 (Version None)
Quarter: 2011Q1

REPORT INFORMATION
  Report Type: 
  Country: None (occurrence: None)
  Receive Date: 20110218
  Receipt Date: 20110210
  Transmission Date: 20110831
  Serious: Yes (Death)
  Sender: FDA-Public Use
  Company Number: B0696197A

PATIENT
  Sex: Male

DRUGS (2)
  1. LAMICTAL [Suspect]
     Indication: EPILEPSY
     Dosage: 300MG PER DAY
     Route: 048
     Dates: start: 20100618, end: 20110117
  2. HYDANTOL [Concomitant]
     Indication: EPILEPSY
     Dosage: 12IUAX PER DAY
     Route: 048
     Dates: start: 20020601, end: 20110117

REACTIONS (1)
  - SUDDEN DEATH [None]
